FAERS Safety Report 5677808-8 (Version None)
Quarter: 2008Q1

REPORT INFORMATION
  Report Type: 
  Country: None (occurrence: None)
  Receive Date: 20080324
  Receipt Date: 20080317
  Transmission Date: 20080703
  Serious: Yes (Hospitalization)
  Sender: FDA-Public Use
  Company Number: US-BAXTER-2008BH002419

PATIENT
  Age: 48 Year
  Sex: Female
  Weight: 48 kg

DRUGS (3)
  1. HEPARIN SODIUM [Suspect]
     Indication: ANGIOPLASTY
     Dosage: DOSE UNIT:UNKNOWN
     Route: 065
     Dates: start: 20071201, end: 20080201
  2. TORADOL [Concomitant]
     Indication: PAIN
     Dosage: DOSE UNIT:UNKNOWN
     Route: 042
     Dates: start: 20071210, end: 20071215
  3. ASPIRIN [Concomitant]
     Indication: DRUG USE FOR UNKNOWN INDICATION
     Dosage: DOSE UNIT:UNKNOWN
     Route: 065

REACTIONS (10)
  - ASPIRATION [None]
  - BLOOD CREATININE INCREASED [None]
  - DIARRHOEA [None]
  - NAUSEA [None]
  - PAIN IN EXTREMITY [None]
  - PULSE ABSENT [None]
  - PYREXIA [None]
  - RENAL FAILURE ACUTE [None]
  - RESPIRATORY FAILURE [None]
  - VOMITING [None]
